FAERS Safety Report 8000362-2 (Version None)
Quarter: 2011Q4

REPORT INFORMATION
  Report Type: 
  Country: None (occurrence: None)
  Receive Date: 20111222
  Receipt Date: 20110914
  Transmission Date: 20120403
  Serious: No
  Sender: FDA-Public Use
  Company Number: US-BAYER-2011-086489

PATIENT
  Age: 49 Year
  Sex: Male

DRUGS (3)
  1. AVELOX [Suspect]
     Indication: EAR INFECTION
     Dosage: 400 MG, QD
     Route: 048
     Dates: start: 20110909
  2. AVELOX [Suspect]
     Indication: SINUSITIS
  3. ANTIBIOTICS FOR TOPICAL USE [Concomitant]

REACTIONS (2)
  - SENSATION OF HEAVINESS [None]
  - NERVOUSNESS [None]
